FAERS Safety Report 5584062-4 (Version None)
Quarter: 2008Q1

REPORT INFORMATION
  Report Type: 
  Country: None (occurrence: None)
  Receive Date: 20080104
  Receipt Date: 20080104
  Transmission Date: 20080703
  Serious: Yes (Other)
  Sender: FDA-Public Use
  Company Number: None

PATIENT
  Age: 25 Year
  Sex: Male

DRUGS (4)
  1. CHANTIX [Suspect]
     Indication: SMOKING CESSATION THERAPY
     Dosage: ONE MG BID PO
     Route: 048
     Dates: start: 20070520, end: 20070711
  2. LAMICTAL [Concomitant]
  3. ADDERALL 10 [Concomitant]
  4. WELLBUTRIN [Concomitant]

REACTIONS (1)
  - HALLUCINATION, AUDITORY [None]
